FAERS Safety Report 22378808 (Version 1)
Quarter: 2023Q2

REPORT INFORMATION
  Report Type: Spontaneous
  Country: HK (occurrence: HK)
  Receive Date: 20230529
  Receipt Date: 20230529
  Transmission Date: 20230721
  Serious: Yes (Life-Threatening, Hospitalization, Other)
  Sender: FDA-Public Use
  Company Number: None

PATIENT
  Age: 14 Year
  Sex: Male

DRUGS (12)
  1. CLONIDINE [Suspect]
     Active Substance: CLONIDINE
     Indication: Sedation
     Dosage: 0.58 ?G/KG, 8 HOUR
     Route: 048
  2. CLONIDINE [Suspect]
     Active Substance: CLONIDINE
     Dosage: UNK,UNK
     Route: 048
  3. TETRABENAZINE [Suspect]
     Active Substance: TETRABENAZINE
     Indication: Product used for unknown indication
     Dosage: UNK,UNK
  4. MORPHINE [Suspect]
     Active Substance: MORPHINE
     Indication: Sedative therapy
     Dosage: 20 ?G/KG, PER HOUR
     Route: 042
  5. MORPHINE [Suspect]
     Active Substance: MORPHINE
     Route: 048
  6. BACLOFEN [Suspect]
     Active Substance: BACLOFEN
     Indication: Product used for unknown indication
     Dosage: UNK,UNK
  7. CLOBAZAM [Suspect]
     Active Substance: CLOBAZAM
     Indication: Product used for unknown indication
     Dosage: UNK,UNK
  8. CHLORAL HYDRATE [Suspect]
     Active Substance: CHLORAL HYDRATE
     Indication: Sedation
     Dosage: 23 MG/KG, EVERY 6 HOUR
     Route: 048
  9. CHLORAL HYDRATE [Suspect]
     Active Substance: CHLORAL HYDRATE
     Dosage: UNK,UNK
     Route: 048
  10. DIAZEPAM [Suspect]
     Active Substance: DIAZEPAM
     Indication: Sedative therapy
     Dosage: UNK,UNK
     Route: 048
  11. CARBAMAZEPINE [Suspect]
     Active Substance: CARBAMAZEPINE
     Indication: Product used for unknown indication
     Dosage: UNK,UNK
  12. FUROSEMIDE [Concomitant]
     Active Substance: FUROSEMIDE
     Indication: Prophylaxis
     Dosage: 1.2 MG/KG, PER HOUR

REACTIONS (3)
  - Sedation complication [Recovered/Resolved]
  - Hypoventilation [Recovered/Resolved]
  - Respiratory failure [Recovered/Resolved]
